FAERS Safety Report 6204296-5 (Version None)
Quarter: 2009Q2

REPORT INFORMATION
  Report Type: 
  Country: None (occurrence: None)
  Receive Date: 20090518
  Receipt Date: 20090122
  Transmission Date: 20091009
  Serious: No
  Sender: FDA-Public Use
  Company Number: WAES 0901USA00157

PATIENT
  Sex: 0

DRUGS (2)
  1. JANUVIA [Suspect]
     Dosage: PO
     Route: 048
     Dates: end: 20081201
  2. JANUVIA [Suspect]
     Dosage: PO
     Route: 048
     Dates: start: 20090101

REACTIONS (1)
  - SKIN ODOUR ABNORMAL [None]
